FAERS Safety Report 7118380-5 (Version None)
Quarter: 2010Q4

REPORT INFORMATION
  Report Type: 
  Country: None (occurrence: None)
  Receive Date: 20101123
  Receipt Date: 20101115
  Transmission Date: 20110411
  Serious: Yes (Other)
  Sender: FDA-Public Use
  Company Number: US-JNJFOC-20101105101

PATIENT
  Age: 3 Decade
  Sex: Female

DRUGS (1)
  1. NUCYNTA [Suspect]
     Indication: PRODUCT USED FOR UNKNOWN INDICATION
     Dosage: START DATE: 13-NOV-2010  DOSE: 1-2 TABLETS EVERY 4-6 HOURS
     Route: 048

REACTIONS (1)
  - URINARY RETENTION [None]
